FAERS Safety Report 9150658 (Version 1)
Quarter: 2013Q1

REPORT INFORMATION
  Report Type: Spontaneous
  Country: GB (occurrence: GB)
  Receive Date: 20130308
  Receipt Date: 20130308
  Transmission Date: 20140127
  Serious: Yes (Other)
  Sender: FDA-Public Use
  Company Number: GB-ABBOTT-13P-167-1058402-00

PATIENT
  Age: 71 Year
  Sex: Male

DRUGS (7)
  1. SEVOFLURANE [Suspect]
     Indication: ANAESTHESIA
     Dates: start: 20121101, end: 20121101
  2. REMIFENTANIL [Interacting]
     Indication: ANAESTHESIA
     Route: 042
     Dates: start: 20121101, end: 20121101
  3. ARTHROTEC [Concomitant]
     Indication: PRODUCT USED FOR UNKNOWN INDICATION
  4. CETIRIZINE [Concomitant]
     Indication: PRODUCT USED FOR UNKNOWN INDICATION
  5. EZETROL [Concomitant]
     Indication: BLOOD CHOLESTEROL INCREASED
  6. LIGNOCAINE [Concomitant]
     Indication: ANAESTHESIA
  7. PROPOFOL [Concomitant]
     Indication: ANAESTHESIA

REACTIONS (4)
  - Drug interaction [Recovered/Resolved]
  - Cardiac arrest [Recovered/Resolved]
  - Bradycardia [Recovered/Resolved]
  - Rash erythematous [Recovered/Resolved]
